FAERS Safety Report 13295040 (Version 1)
Quarter: 2017Q1

REPORT INFORMATION
  Report Type: Spontaneous
  Country: US (occurrence: US)
  Receive Date: 20170303
  Receipt Date: 20170303
  Transmission Date: 20170428
  Serious: Yes (Death, Life-Threatening, Hospitalization, Other)
  Sender: FDA-Public Use
  Company Number: US-JNJFOC-20170302529

PATIENT

DRUGS (5)
  1. SAPHRIS [Suspect]
     Active Substance: ASENAPINE MALEATE
     Indication: DRUG ABUSE
     Route: 065
  2. LATUDA [Suspect]
     Active Substance: LURASIDONE HYDROCHLORIDE
     Indication: DRUG ABUSE
     Route: 065
  3. RISPERDAL [Suspect]
     Active Substance: RISPERIDONE
     Indication: DRUG ABUSE
     Route: 065
  4. INVEGA [Suspect]
     Active Substance: PALIPERIDONE
     Indication: DRUG ABUSE
     Route: 065
  5. FANAPT [Suspect]
     Active Substance: ILOPERIDONE
     Indication: DRUG ABUSE
     Route: 065

REACTIONS (24)
  - Respiratory arrest [Unknown]
  - Rhabdomyolysis [Unknown]
  - Hypotension [Unknown]
  - Vertigo [Unknown]
  - Ataxia [Unknown]
  - Blood creatine phosphokinase increased [Unknown]
  - Confusional state [Unknown]
  - Lethargy [Unknown]
  - Dystonia [Unknown]
  - Arrhythmia [Unknown]
  - Somnolence [Unknown]
  - Dizziness [Unknown]
  - Conduction disorder [Unknown]
  - Electrocardiogram change [Unknown]
  - Coma [Unknown]
  - Seizure [Unknown]
  - Hallucination [Unknown]
  - Death [Fatal]
  - Respiratory depression [Unknown]
  - Dysarthria [Unknown]
  - Irritability [Unknown]
  - Agitation [Unknown]
  - Tachycardia [Unknown]
  - Syncope [Unknown]
